FAERS Safety Report 10501646 (Version 1)
Quarter: 2014Q4

REPORT INFORMATION
  Report Type: Spontaneous
  Country: US (occurrence: None)
  Receive Date: 20141006
  Receipt Date: 20141006
  Transmission Date: 20150528
  Serious: Yes (Hospitalization, Disabling)
  Sender: FDA-Public Use
  Company Number: None

PATIENT
  Age: 48 Year
  Sex: Female
  Weight: 75.75 kg

DRUGS (4)
  1. IBUPROFEN. [Concomitant]
     Active Substance: IBUPROFEN
  2. DIALYSIS [Concomitant]
     Active Substance: UNSPECIFIED INGREDIENT
  3. IBUPROFEN. [Suspect]
     Active Substance: IBUPROFEN
     Indication: PAIN
     Dosage: 4 PILLS QID
     Route: 048
  4. TRAMADOL [Concomitant]
     Active Substance: TRAMADOL

REACTIONS (3)
  - Hypertension [None]
  - Gastric ulcer [None]
  - Nephropathy [None]

NARRATIVE: CASE EVENT DATE: 20140501
